FAERS Safety Report 10531110 (Version 1)
Quarter: 2014Q4

REPORT INFORMATION
  Report Type: Spontaneous
  Country: US (occurrence: US)
  Receive Date: 20141021
  Receipt Date: 20141021
  Transmission Date: 20150529
  Serious: Yes (Hospitalization, Other)
  Sender: FDA-Public Use
  Company Number: US-ABBVIE-14P-163-1296981-00

PATIENT

DRUGS (3)
  1. SYNTHROID [Suspect]
     Active Substance: LEVOTHYROXINE SODIUM
     Route: 065
  2. SYNTHROID [Suspect]
     Active Substance: LEVOTHYROXINE SODIUM
     Indication: PRODUCT USED FOR UNKNOWN INDICATION
     Route: 065
  3. UNKNOWN ANTIDEPRESSANT [Concomitant]
     Indication: DEPRESSION

REACTIONS (9)
  - Lymphoedema [Unknown]
  - Weight increased [Unknown]
  - Metastases to thyroid [Unknown]
  - Fatigue [Unknown]
  - Depression [Unknown]
  - Muscle injury [Unknown]
  - Hypersomnia [Unknown]
  - Psychogenic pain disorder [Unknown]
  - Pelvic fracture [Unknown]

NARRATIVE: CASE EVENT DATE: 201404
